FAERS Safety Report 22206221 (Version 1)
Quarter: 2023Q2

REPORT INFORMATION
  Report Type: Spontaneous
  Country: US (occurrence: None)
  Receive Date: 20230412
  Receipt Date: 20230412
  Transmission Date: 20230721
  Serious: Yes (Hospitalization)
  Sender: FDA-Public Use
  Company Number: None

PATIENT
  Age: 57 Year
  Sex: Male
  Weight: 133 kg

DRUGS (15)
  1. JANSSEN COVID-19 VACCINE [Suspect]
     Active Substance: AD26.COV2.S
  2. WARFARIN [Concomitant]
     Active Substance: WARFARIN
  3. ASPIRIN [Concomitant]
     Active Substance: ASPIRIN
  4. LIPITOR [Concomitant]
     Active Substance: ATORVASTATIN CALCIUM
  5. VITAMIN D3 [Concomitant]
     Active Substance: CHOLECALCIFEROL
  6. BREZTRI [Concomitant]
     Active Substance: BUDESONIDE\FORMOTEROL\GLYCOPYRROLATE
  7. SENSIPAR [Concomitant]
     Active Substance: CINACALCET HYDROCHLORIDE
  8. LOPRESSOR [Concomitant]
     Active Substance: METOPROLOL TARTRATE
  9. VITAMINS [Concomitant]
     Active Substance: VITAMINS
  10. PROTONIX [Concomitant]
     Active Substance: PANTOPRAZOLE SODIUM
  11. SENNA [Concomitant]
     Active Substance: SENNA LEAF\SENNOSIDES\SENNOSIDES A AND B
  12. AMBIEN [Concomitant]
     Active Substance: ZOLPIDEM TARTRATE
  13. OZEMPIC [Suspect]
     Active Substance: SEMAGLUTIDE
  14. COUMADIN [Suspect]
     Active Substance: WARFARIN SODIUM
  15. TACROLIMUS [Suspect]
     Active Substance: TACROLIMUS

REACTIONS (8)
  - Vomiting [None]
  - Diarrhoea [None]
  - Asthenia [None]
  - Hypophagia [None]
  - Abdominal discomfort [None]
  - International normalised ratio increased [None]
  - Acute kidney injury [None]
  - Toxicity to various agents [None]

NARRATIVE: CASE EVENT DATE: 20230328
